FAERS Safety Report 9181346 (Version 1)
Quarter: 2013Q1

REPORT INFORMATION
  Report Type: Spontaneous
  Country: US (occurrence: US)
  Receive Date: 20130322
  Receipt Date: 20130322
  Transmission Date: 20140127
  Serious: No
  Sender: FDA-Public Use
  Company Number: US-PFIZER INC-2013089315

PATIENT
  Age: 67 Year
  Sex: Female

DRUGS (1)
  1. PREMARIN [Suspect]
     Indication: HYSTERECTOMY
     Dosage: 1.25 MG, UNK
     Dates: start: 1992

REACTIONS (3)
  - Nightmare [Unknown]
  - Hyperhidrosis [Unknown]
  - Drug effect decreased [Unknown]
